FAERS Safety Report 25213487 (Version 1)
Quarter: 2025Q2

REPORT INFORMATION
  Report Type: Spontaneous
  Country: US (occurrence: None)
  Receive Date: 20250417
  Receipt Date: 20250417
  Transmission Date: 20250717
  Serious: No
  Sender: FDA-CTU
  Company Number: None

PATIENT
  Age: 52 Year
  Sex: Female
  Weight: 117.45 kg

DRUGS (15)
  1. COSENTYX [Suspect]
     Active Substance: SECUKINUMAB
     Indication: Hidradenitis
     Route: 058
     Dates: start: 20241108
  2. ACIDOPHILUS PROBIOTIC BLEND [Concomitant]
  3. ADDERALL [Concomitant]
     Active Substance: AMPHETAMINE ASPARTATE\AMPHETAMINE SULFATE\DEXTROAMPHETAMINE SACCHARATE\DEXTROAMPHETAMINE SULFATE
  4. AMBIEN [Concomitant]
     Active Substance: ZOLPIDEM TARTRATE
  5. AMITRIPTYLINE [Concomitant]
     Active Substance: AMITRIPTYLINE
  6. BELBUCA [Concomitant]
     Active Substance: BUPRENORPHINE HYDROCHLORIDE
  7. CELECOXIB [Concomitant]
     Active Substance: CELECOXIB
  8. GABAPENTIN [Concomitant]
     Active Substance: GABAPENTIN
  9. K2-D3  MAX VITAMIN [Concomitant]
  10. MAGNESIUM EXTRA STRENGTH [Concomitant]
  11. OLMESARTAN [Concomitant]
     Active Substance: OLMESARTAN
  12. OXYCODONE [Concomitant]
     Active Substance: OXYCODONE
  13. PAXIL [Concomitant]
     Active Substance: PAROXETINE HYDROCHLORIDE
  14. SINGULAIR [Concomitant]
     Active Substance: MONTELUKAST SODIUM
  15. TIZANIDINE [Concomitant]
     Active Substance: TIZANIDINE

REACTIONS (5)
  - Oral mucosal exfoliation [None]
  - Tongue exfoliation [None]
  - Lip exfoliation [None]
  - Skin exfoliation [None]
  - Oral mucosal discolouration [None]

NARRATIVE: CASE EVENT DATE: 20241118
